FAERS Safety Report 9852861 (Version 1)
Quarter: 2014Q1

REPORT INFORMATION
  Report Type: Spontaneous
  Country: BR (occurrence: BR)
  Receive Date: 20140129
  Receipt Date: 20140129
  Transmission Date: 20141002
  Serious: Yes (Hospitalization, Other)
  Sender: FDA-Public Use
  Company Number: BR-PFIZER INC-2014024683

PATIENT
  Age: 70 Year
  Sex: Male
  Weight: 64 kg

DRUGS (3)
  1. ATENOLOL [Suspect]
     Indication: HEART RATE INCREASED
     Dosage: 25 MG, DAILY
     Route: 048
     Dates: start: 2008
  2. NEXIUM [Suspect]
     Indication: PROPHYLAXIS AGAINST GASTROINTESTINAL ULCER
     Dosage: 40 MILLIGRAMS EVERY MORNING
     Route: 048
  3. ATACAND HCT [Suspect]
     Indication: HYPERTENSION
     Dosage: 16/12.5 MG, DAILY
     Route: 048
     Dates: start: 2008

REACTIONS (4)
  - Myocardial infarction [Recovered/Resolved]
  - Coronary artery occlusion [Not Recovered/Not Resolved]
  - Hypertension [Recovered/Resolved]
  - Heart rate increased [Recovered/Resolved]
